FAERS Safety Report 20009035 (Version 1)
Quarter: 2021Q4

REPORT INFORMATION
  Report Type: Spontaneous
  Country: CA (occurrence: CA)
  Receive Date: 20211029
  Receipt Date: 20211029
  Transmission Date: 20220303
  Serious: Yes (Hospitalization, Other)
  Sender: FDA-Public Use
  Company Number: CA-AUROBINDO-AUR-APL-2021-044487

PATIENT
  Sex: Male

DRUGS (7)
  1. PAROXETINE [Suspect]
     Active Substance: PAROXETINE
     Indication: Product used for unknown indication
     Dosage: 20.0 MILLIGRAM, ONCE A DAY
     Route: 065
  2. PAROXETINE [Suspect]
     Active Substance: PAROXETINE
     Indication: Depression
     Dosage: 10.0 MILLIGRAM
     Route: 065
  3. BENZTROPINE [Suspect]
     Active Substance: BENZTROPINE
     Indication: Depression
     Dosage: 2.0  MILLIGRAM, ONCE A DAY
     Route: 065
  4. SAPHRIS [Suspect]
     Active Substance: ASENAPINE MALEATE
     Indication: Product used for unknown indication
     Dosage: 5.0 MILLIGRAM, ONCE A DAY
     Route: 048
  5. SAPHRIS [Suspect]
     Active Substance: ASENAPINE MALEATE
     Indication: Depression
     Dosage: 5.0  MILLIGRAM, TWO TIMES A DAY
     Route: 048
  6. MEDROXYPROGESTERONE [Concomitant]
     Active Substance: MEDROXYPROGESTERONE
     Indication: Product used for unknown indication
     Dosage: 200.0 MILLIGRAM
     Route: 030
  7. MEDROXYPROGESTERONE [Concomitant]
     Active Substance: MEDROXYPROGESTERONE
     Dosage: UNK
     Route: 065

REACTIONS (1)
  - Anticholinergic syndrome [Unknown]
